FAERS Safety Report 8763126 (Version 1)
Quarter: 2012Q4

REPORT INFORMATION
  Report Type: 
  Country: JP (occurrence: JP)
  Receive Date: 20120905
  Receipt Date: 20120905
  Transmission Date: 20130627
  Serious: Yes (Hospitalization)
  Sender: FDA-Public Use
  Company Number: JP-EISAI INC-E2090-02271-SPO-JP

PATIENT
  Age: 6 Year
  Sex: Male

DRUGS (2)
  1. EXCEGRAN [Suspect]
     Indication: SYMPTOMATIC EPILEPSY
     Dosage: unknown
     Route: 048
  2. VALPROATE SODIUM [Suspect]
     Indication: SYMPTOMATIC EPILEPSY
     Dosage: unknown
     Route: 048

REACTIONS (1)
  - Stevens-Johnson syndrome [Recovering/Resolving]
